FAERS Safety Report 8976236 (Version 2)
Quarter: 2012Q4

REPORT INFORMATION
  Report Type: 
  Country: US (occurrence: US)
  Receive Date: 20121220
  Receipt Date: 20121227
  Transmission Date: 20130627
  Serious: Yes (Hospitalization, Other)
  Sender: FDA-Public Use
  Company Number: US-009507513-2011SP037380

PATIENT

DRUGS (1)
  1. NUVARING [Suspect]
     Indication: CONTRACEPTION
     Dosage: UNK
     Route: 067
     Dates: start: 200812, end: 20090731

REACTIONS (8)
  - Pulmonary embolism [Unknown]
  - Abnormal loss of weight [Unknown]
  - Anxiety [Unknown]
  - Fatigue [Unknown]
  - Pleurisy [Unknown]
  - Chest pain [Unknown]
  - Depression [Unknown]
  - Chest pain [Unknown]
